FAERS Safety Report 5345996-9 (Version None)
Quarter: 2007Q2

REPORT INFORMATION
  Report Type: 
  Country: None (occurrence: None)
  Receive Date: 20070605
  Receipt Date: 20070529
  Transmission Date: 20071010
  Serious: Yes (Death)
  Sender: FDA-Public Use
  Company Number: IT-BRISTOL-MYERS SQUIBB COMPANY-13797295

PATIENT
  Age: 36 Year
  Sex: Male

DRUGS (1)
  1. DASATINIB [Suspect]
     Route: 048
     Dates: start: 20060101, end: 20070316

REACTIONS (2)
  - FEBRILE NEUTROPENIA [None]
  - SEPTIC SHOCK [None]
